FAERS Safety Report 8351400 (Version 2)
Quarter: 2013Q4

REPORT INFORMATION
  Report Type: Spontaneous
  Country: US (occurrence: US)
  Receive Date: 20120124
  Receipt Date: 20131223
  Transmission Date: 20140711
  Serious: Yes (Hospitalization, Other)
  Sender: FDA-Public Use
  Company Number: US-BAYER-2012-006465

PATIENT
  Age: 24 Year
  Sex: Female

DRUGS (10)
  1. YAZ [Suspect]
     Dosage: UNK
     Dates: start: 200111, end: 200910
  2. YASMIN [Suspect]
     Dosage: UNK
     Dates: start: 200111, end: 200910
  3. OCELLA [Suspect]
     Dosage: UNK
     Dates: start: 200111, end: 200910
  4. AZITHROMYCIN [Concomitant]
     Dosage: 250 MG, UNK
     Route: 048
  5. FLUCONAZOLE [Concomitant]
     Dosage: 150 MG, UNK
     Route: 048
  6. B COMPLEX [B3,B6,B2,B1 HCL] [Concomitant]
  7. TEA, GREEN [Concomitant]
     Dosage: 150 MG, UNK
  8. PROBIOTICS [Concomitant]
     Dosage: ONCE DAILY
  9. ZYRTEC [Concomitant]
     Dosage: 10 MG, UNK
  10. TRAMADOL [Concomitant]

REACTIONS (3)
  - Cholecystitis chronic [None]
  - Cholecystectomy [None]
  - Injury [None]
